FAERS Safety Report 22614891 (Version 1)
Quarter: 2023Q2

REPORT INFORMATION
  Report Type: Spontaneous
  Country: US (occurrence: US)
  Receive Date: 20230619
  Receipt Date: 20230619
  Transmission Date: 20230721
  Serious: Yes (Hospitalization)
  Sender: FDA-Public Use
  Company Number: US-drreddys-LIT/USA/23/0167248

PATIENT
  Age: 90 Year
  Sex: Female

DRUGS (5)
  1. CARVEDILOL [Interacting]
     Active Substance: CARVEDILOL
     Indication: Hypertension
  2. CANDESARTAN [Interacting]
     Active Substance: CANDESARTAN
     Indication: Hypertension
  3. HYDRALAZINE [Interacting]
     Active Substance: HYDRALAZINE HYDROCHLORIDE
     Indication: Hypertension
  4. NIFEDIPINE [Interacting]
     Active Substance: NIFEDIPINE
     Indication: Hypertension
  5. KAYEXALATE [Interacting]
     Active Substance: SODIUM POLYSTYRENE SULFONATE
     Indication: Hyperkalaemia

REACTIONS (3)
  - Hypertension [Unknown]
  - Drug interaction [Unknown]
  - Hypokalaemia [Unknown]
